FAERS Safety Report 16643761 (Version 1)
Quarter: 2019Q3

REPORT INFORMATION
  Report Type: Spontaneous
  Country: US (occurrence: US)
  Receive Date: 20190729
  Receipt Date: 20190729
  Transmission Date: 20191004
  Serious: No
  Sender: FDA-Public Use
  Company Number: US-PRINSTON PHARMACEUTICAL INC.-2018PRN01439

PATIENT
  Age: 70 Year
  Sex: Female
  Weight: 52.61 kg

DRUGS (5)
  1. CLONAZEPAM. [Suspect]
     Active Substance: CLONAZEPAM
     Indication: FIBROMYALGIA
  2. CLONAZEPAM (ACCOR) [Suspect]
     Active Substance: CLONAZEPAM
     Indication: FIBROMYALGIA
  3. CLONAZEPAM. [Suspect]
     Active Substance: CLONAZEPAM
     Indication: PAIN
     Dosage: 0.5 MG, 1X/DAY AT HS
     Route: 048
     Dates: start: 201807
  4. NATURE-THROID [Concomitant]
     Active Substance: THYROID, PORCINE
  5. CLONAZEPAM (ACCOR) [Suspect]
     Active Substance: CLONAZEPAM
     Indication: PAIN

REACTIONS (4)
  - Reaction to excipient [Not Recovered/Not Resolved]
  - Frequent bowel movements [Recovered/Resolved]
  - Abdominal pain upper [Not Recovered/Not Resolved]
  - Off label use [Unknown]
